FAERS Safety Report 23213901 (Version 2)
Quarter: 2024Q2

REPORT INFORMATION
  Report Type: Other
  Country: HR (occurrence: HR)
  Receive Date: 20231121
  Receipt Date: 20240502
  Transmission Date: 20240715
  Serious: Yes (Hospitalization)
  Sender: FDA-Public Use
  Company Number: HR-ROCHE-3458693

PATIENT
  Age: 71 Year
  Sex: Female

DRUGS (1)
  1. TOCILIZUMAB [Suspect]
     Active Substance: TOCILIZUMAB
     Indication: Giant cell arteritis
     Route: 058

REACTIONS (3)
  - Disseminated intravascular coagulation [Recovered/Resolved]
  - Off label use [Unknown]
  - Hypofibrinogenaemia [Unknown]
